FAERS Safety Report 6930270-7 (Version None)
Quarter: 2010Q3

REPORT INFORMATION
  Report Type: 
  Country: None (occurrence: None)
  Receive Date: 20100813
  Receipt Date: 20100804
  Transmission Date: 20110219
  Serious: Yes (Hospitalization)
  Sender: FDA-Public Use
  Company Number: 7013300

PATIENT
  Sex: Female

DRUGS (2)
  1. REBIF [Suspect]
     Indication: MULTIPLE SCLEROSIS
  2. MINOSET PLUS (NOVO-PETRIN) [Suspect]

REACTIONS (1)
  - HYPERSENSITIVITY [None]
